FAERS Safety Report 24728487 (Version 1)
Quarter: 2024Q4

REPORT INFORMATION
  Report Type: Spontaneous
  Country: US (occurrence: US)
  Receive Date: 20241212
  Receipt Date: 20241212
  Transmission Date: 20250114
  Serious: Yes (Other)
  Sender: ALKERMES
  Company Number: US-ALKERMES INC.-ALK-2024-003126

PATIENT
  Sex: Female

DRUGS (1)
  1. VIVITROL [Suspect]
     Active Substance: NALTREXONE
     Indication: Product used for unknown indication
     Dosage: 380 MILLIGRAM, QMO
     Route: 030
     Dates: start: 202411

REACTIONS (4)
  - Colour blindness [Unknown]
  - Vision blurred [Unknown]
  - Diplopia [Unknown]
  - Eye colour change [Unknown]

NARRATIVE: CASE EVENT DATE: 20241201
